FAERS Safety Report 17475193 (Version 1)
Quarter: 2020Q1

REPORT INFORMATION
  Report Type: Spontaneous
  Country: US (occurrence: US)
  Receive Date: 20200228
  Receipt Date: 20200228
  Transmission Date: 20200409
  Serious: Yes (Hospitalization)
  Sender: FDA-Public Use
  Company Number: US-ASTRAZENECA-2020SE26369

PATIENT
  Age: 68 Year
  Sex: Male

DRUGS (2)
  1. DANAZOL. [Interacting]
     Active Substance: DANAZOL
     Indication: GASTROINTESTINAL HAEMORRHAGE
  2. ROSUVASTATIN. [Suspect]
     Active Substance: ROSUVASTATIN
     Indication: VENTRICULAR ASSIST DEVICE INSERTION
     Route: 048

REACTIONS (3)
  - Drug interaction [Recovered/Resolved]
  - Rhabdomyolysis [Recovering/Resolving]
  - Acute kidney injury [Recovering/Resolving]
